FAERS Safety Report 5378152-9 (Version None)
Quarter: 2007Q3

REPORT INFORMATION
  Report Type: 
  Country: None (occurrence: None)
  Receive Date: 20070705
  Receipt Date: 20070625
  Transmission Date: 20080115
  Serious: Yes (Hospitalization, Disabling, Other)
  Sender: FDA-Public Use
  Company Number: GBWYE907925JUN07

PATIENT
  Age: 38 Year
  Sex: Female

DRUGS (15)
  1. IBUPROFEN [Suspect]
     Dosage: UNKNOWN
  2. ASPIRIN [Concomitant]
  3. ACTRAPID HUMAN [Concomitant]
     Dosage: UNKNOWN
  4. IRBESARTAN [Concomitant]
  5. BUMETANIDE [Concomitant]
  6. DOSULEPIN [Concomitant]
  7. FLUTICASONE PROPIONATE [Concomitant]
     Route: 055
  8. FUROSEMIDE [Concomitant]
  9. GABAPENTIN [Concomitant]
  10. KETOCONAZOLE [Concomitant]
     Dosage: 2%, FREQUENCY UNKNOWN
  11. LEVOTHYROXINE SODIUM [Concomitant]
     Dosage: UNKNOWN
  12. RAMIPRIL [Concomitant]
  13. SALMETEROL [Concomitant]
     Route: 055
  14. TRAMADOL HCL [Concomitant]
  15. VARENICLINE [Suspect]
     Indication: SMOKING CESSATION THERAPY
     Route: 048
     Dates: start: 20070420, end: 20070501

REACTIONS (3)
  - CONDITION AGGRAVATED [None]
  - INSOMNIA [None]
  - LIVER DISORDER [None]
